FAERS Safety Report 7585553-7 (Version None)
Quarter: 2011Q2

REPORT INFORMATION
  Report Type: 
  Country: None (occurrence: None)
  Receive Date: 20110531
  Receipt Date: 20110224
  Transmission Date: 20111010
  Serious: Yes (Other)
  Sender: FDA-Public Use
  Company Number: 268538USA

PATIENT
  Sex: Female

DRUGS (3)
  1. BUDESONIDE [Suspect]
     Indication: INFLUENZA
     Dosage: 0.5MG/2ML, RESPIRATORY
     Route: 055
     Dates: start: 20110224, end: 20110224
  2. BUDESONIDE [Suspect]
     Indication: PHARYNGITIS STREPTOCOCCAL
     Dosage: 0.5MG/2ML, RESPIRATORY
     Route: 055
     Dates: start: 20110224, end: 20110224
  3. BUDESONIDE [Suspect]
     Indication: DYSPNOEA
     Dosage: 0.5MG/2ML, RESPIRATORY
     Route: 055
     Dates: start: 20110224, end: 20110224

REACTIONS (7)
  - PHARYNGEAL OEDEMA [None]
  - HYPERSENSITIVITY [None]
  - THROAT IRRITATION [None]
  - ERYTHEMA [None]
  - SWELLING [None]
  - URTICARIA [None]
  - PRURITUS [None]
